FAERS Safety Report 9807542 (Version 1)
Quarter: 2014Q1

REPORT INFORMATION
  Report Type: Spontaneous
  Country: US (occurrence: US)
  Receive Date: 20140110
  Receipt Date: 20140110
  Transmission Date: 20141002
  Serious: No
  Sender: FDA-Public Use
  Company Number: US-SANOFI-AVENTIS-2013SA008430

PATIENT
  Age: 92 Year
  Sex: Female

DRUGS (1)
  1. PLAVIX [Suspect]
     Indication: HEART RATE IRREGULAR
     Dates: end: 20130129

REACTIONS (9)
  - Fall [Unknown]
  - Upper limb fracture [Unknown]
  - Pain in extremity [Unknown]
  - Upper respiratory tract congestion [Unknown]
  - Dysphonia [Unknown]
  - Vision blurred [Unknown]
  - Balance disorder [Unknown]
  - Drug dose omission [Unknown]
  - Off label use [Unknown]
